FAERS Safety Report 10524796 (Version 2)
Quarter: 2014Q4

REPORT INFORMATION
  Report Type: Spontaneous
  Country: SE (occurrence: SE)
  Receive Date: 20141017
  Receipt Date: 20141017
  Transmission Date: 20150528
  Serious: Yes (Other)
  Sender: FDA-Public Use
  Company Number: SE-SA-2014SA015525

PATIENT
  Age: 70 Year
  Sex: Female

DRUGS (7)
  1. MULTAQ [Suspect]
     Active Substance: DRONEDARONE
     Indication: ATRIAL FIBRILLATION
     Route: 048
     Dates: start: 20121028
  2. KREDEX [Concomitant]
     Active Substance: CARVEDILOL
  3. PROGYNON [Concomitant]
  4. STESOLID [Concomitant]
     Active Substance: DIAZEPAM
  5. IMOVANE [Concomitant]
     Active Substance: ZOPICLONE
  6. PANODIL [Concomitant]
     Active Substance: ACETAMINOPHEN
  7. TROMBYL [Concomitant]
     Active Substance: ASPIRIN

REACTIONS (6)
  - Pulmonary function test decreased [Not Recovered/Not Resolved]
  - Myalgia [Not Recovered/Not Resolved]
  - Nausea [Not Recovered/Not Resolved]
  - Cardiac fibrillation [Not Recovered/Not Resolved]
  - Fatigue [Not Recovered/Not Resolved]
  - Heart rate decreased [Not Recovered/Not Resolved]

NARRATIVE: CASE EVENT DATE: 20131001
